FAERS Safety Report 13338912 (Version 8)
Quarter: 2017Q4

REPORT INFORMATION
  Report Type: Spontaneous
  Country: US (occurrence: US)
  Receive Date: 20170315
  Receipt Date: 20171027
  Transmission Date: 20180320
  Serious: Yes (Congenital Anomaly, Other)
  Sender: FDA-Public Use
  Company Number: PHEH2017US007562

PATIENT
  Sex: Female

DRUGS (3)
  1. ZOFRAN ODT [Suspect]
     Active Substance: ONDANSETRON HYDROCHLORIDE
     Indication: FOETAL EXPOSURE DURING PREGNANCY
     Route: 064
  2. ONDANSETRON. [Suspect]
     Active Substance: ONDANSETRON
     Indication: FOETAL EXPOSURE DURING PREGNANCY
     Dosage: MOTHER^S DOSE: 4 MG
     Route: 064
  3. ZOFRAN [Suspect]
     Active Substance: ONDANSETRON HYDROCHLORIDE
     Indication: FOETAL EXPOSURE DURING PREGNANCY
     Route: 064

REACTIONS (12)
  - Cephalhaematoma [Unknown]
  - Caput succedaneum [Unknown]
  - Skin injury [Unknown]
  - Otitis media acute [Unknown]
  - Anaemia neonatal [Unknown]
  - Cleft lip [Unknown]
  - Birth trauma [Unknown]
  - Injury [Unknown]
  - Eustachian tube dysfunction [Unknown]
  - Gastrooesophageal reflux disease [Unknown]
  - Foetal exposure during pregnancy [Unknown]
  - Cleft palate [Unknown]
